FAERS Safety Report 5282881-5 (Version None)
Quarter: 2007Q2

REPORT INFORMATION
  Report Type: 
  Country: None (occurrence: None)
  Receive Date: 20070402
  Receipt Date: 20070320
  Transmission Date: 20071010
  Serious: Yes (Hospitalization)
  Sender: FDA-Public Use
  Company Number: PHBS2007JP05154

PATIENT
  Age: 3 Day
  Sex: Male

DRUGS (3)
  1. LUDIOMIL [Suspect]
     Indication: MUSCULAR DYSTROPHY
     Route: 048
  2. ETIZOLAM [Concomitant]
     Route: 048
  3. ALPRAZOLAM [Concomitant]
     Route: 048

REACTIONS (2)
  - MUSCULAR DYSTROPHY [None]
  - RHABDOMYOLYSIS [None]
